FAERS Safety Report 11397006 (Version 2)
Quarter: 2015Q3

REPORT INFORMATION
  Report Type: Spontaneous
  Country: US (occurrence: US)
  Receive Date: 20150819
  Receipt Date: 20150925
  Transmission Date: 20151125
  Serious: No
  Sender: FDA-Public Use
  Company Number: US-PFIZER INC-2015272780

PATIENT
  Age: 66 Year
  Sex: Female

DRUGS (2)
  1. GABAPENTIN. [Suspect]
     Active Substance: GABAPENTIN
     Dosage: 2400 MG, 2X/DAY
  2. GABAPENTIN. [Suspect]
     Active Substance: GABAPENTIN
     Indication: CRITICAL ILLNESS POLYNEUROPATHY
     Dosage: 600 MG, UNK
     Dates: start: 2013

REACTIONS (3)
  - Drug intolerance [Unknown]
  - Drug ineffective for unapproved indication [Unknown]
  - Overdose [Unknown]
